FAERS Safety Report 18416421 (Version 2)
Quarter: 2020Q4

REPORT INFORMATION
  Report Type: Spontaneous
  Country: FR (occurrence: FR)
  Receive Date: 20201022
  Receipt Date: 20201110
  Transmission Date: 20210114
  Serious: Yes (Death)
  Sender: FDA-Public Use
  Company Number: FR-MYLANLABS-2020M1088710

PATIENT
  Age: 44 Year
  Sex: Female
  Weight: 64 kg

DRUGS (12)
  1. METHOTREXATE MYLAN [Suspect]
     Active Substance: METHOTREXATE SODIUM
     Indication: PROPHYLAXIS AGAINST TRANSPLANT REJECTION
     Dosage: 15 MG/M2 , 1 CYCLE
     Route: 042
     Dates: start: 20200815, end: 20200820
  2. ENDOXAN                            /00021101/ [Suspect]
     Active Substance: CYCLOPHOSPHAMIDE
     Indication: BONE MARROW CONDITIONING REGIMEN
     Dosage: 4560 MILLIGRAM, QD
     Route: 042
     Dates: start: 20200811, end: 20200812
  3. INNOVAIR [Concomitant]
     Active Substance: BECLOMETHASONE DIPROPIONATE\FORMOTEROL
     Indication: ASTHMA
     Dosage: UNK
  4. WELLVONE [Concomitant]
     Active Substance: ATOVAQUONE
     Indication: OPPORTUNISTIC INFECTION PROPHYLAXIS
     Dosage: UNK
     Route: 048
     Dates: start: 202005
  5. ENANTONE LP [Concomitant]
     Active Substance: LEUPROLIDE ACETATE
     Indication: METRORRHAGIA
     Dosage: UNK
     Route: 048
  6. VALACICLOVIR [Concomitant]
     Active Substance: VALACYCLOVIR HYDROCHLORIDE
     Indication: OPPORTUNISTIC INFECTION PROPHYLAXIS
     Dosage: UNK
     Route: 048
     Dates: start: 202002
  7. INEXIUM                            /01479302/ [Concomitant]
     Active Substance: ESOMEPRAZOLE MAGNESIUM
     Indication: BURN OESOPHAGEAL
     Dosage: UNK
     Route: 048
  8. BUSILVEX [Suspect]
     Active Substance: BUSULFAN
     Indication: BONE MARROW CONDITIONING REGIMEN
     Dosage: 243 MILLIGRAM, QD
     Route: 042
     Dates: start: 20200807, end: 20200810
  9. THYMOGLOBULINE [Concomitant]
     Active Substance: LAPINE T-LYMPHOCYTE IMMUNE GLOBULIN
     Dosage: UNK
  10. UROMITEXAN [Concomitant]
     Active Substance: MESNA
     Dosage: UNK
  11. METHOTREXATE MYLAN [Suspect]
     Active Substance: METHOTREXATE SODIUM
     Indication: BONE MARROW CONDITIONING REGIMEN
     Dosage: UNK UNK, 1 CYCLE
     Route: 042
     Dates: start: 20200815, end: 20200821
  12. GILTERITINIB [Suspect]
     Active Substance: GILTERITINIB
     Indication: ACUTE MYELOID LEUKAEMIA
     Dosage: 200 MILLIGRAM, QD
     Route: 048
     Dates: start: 20200401, end: 202008

REACTIONS (2)
  - Pericarditis constrictive [Fatal]
  - Cardiorenal syndrome [Fatal]

NARRATIVE: CASE EVENT DATE: 20200820
